FAERS Safety Report 5128031-7 (Version None)
Quarter: 2006Q4

REPORT INFORMATION
  Report Type: 
  Country: None (occurrence: None)
  Receive Date: 20061013
  Receipt Date: 20061013
  Transmission Date: 20070319
  Serious: Yes (Life-Threatening, Other)
  Sender: FDA-Public Use
  Company Number: None

PATIENT
  Age: 54 Year
  Sex: Female
  Weight: 52.1637 kg

DRUGS (1)
  1. TEMAZAPAM   15MG   MYLAN [Suspect]
     Indication: INSOMNIA
     Dosage: 2 PILLS AT BEDTIME 1CE A DAY
     Dates: start: 20060820, end: 20061012

REACTIONS (4)
  - CONCUSSION [None]
  - CONVULSION [None]
  - DRUG INEFFECTIVE [None]
  - PHARMACEUTICAL PRODUCT COMPLAINT [None]
